FAERS Safety Report 11294820 (Version 1)
Quarter: 2015Q3

REPORT INFORMATION
  Report Type: Spontaneous
  Country: US (occurrence: None)
  Receive Date: 20150722
  Receipt Date: 20150722
  Transmission Date: 20151125
  Serious: Yes (Life-Threatening, Hospitalization, Disabling, Other)
  Sender: FDA-Public Use
  Company Number: None

PATIENT
  Age: 43 Year
  Sex: Female
  Weight: 65.77 kg

DRUGS (4)
  1. CYMBALTA [Suspect]
     Active Substance: DULOXETINE HYDROCHLORIDE
     Indication: NEURALGIA
     Route: 048
     Dates: start: 20140201, end: 20150616
  2. NEURONTIN [Concomitant]
     Active Substance: GABAPENTIN
  3. OMEGA 3 [Concomitant]
     Active Substance: OMEGA-3 FATTY ACIDS
  4. VITAMIN C [Concomitant]
     Active Substance: ASCORBIC ACID

REACTIONS (9)
  - Affective disorder [None]
  - Paraesthesia [None]
  - Nausea [None]
  - Drug withdrawal syndrome [None]
  - Dizziness [None]
  - Impaired driving ability [None]
  - Abasia [None]
  - Hypoaesthesia [None]
  - Speech disorder [None]

NARRATIVE: CASE EVENT DATE: 20150616
